FAERS Safety Report 5728542-7 (Version None)
Quarter: 2008Q2

REPORT INFORMATION
  Report Type: 
  Country: None (occurrence: None)
  Receive Date: 20080430
  Receipt Date: 20080417
  Transmission Date: 20081010
  Serious: Yes (Other)
  Sender: FDA-Public Use
  Company Number: S08-FRA-01560

PATIENT
  Age: 83 Year
  Sex: Male

DRUGS (6)
  1. CITALOPRAM HYDROBROMIDE [Suspect]
     Dates: end: 20080331
  2. ATHYMIL (MIANSERIN HYDROCHLORIDE) [Suspect]
     Indication: FAILURE TO THRIVE
     Dosage: 30 MG QD PO
     Route: 048
     Dates: start: 20080331, end: 20080331
  3. URBANYL (CLOBAZAM) [Suspect]
     Dates: end: 20080331
  4. NEURONTIN [Suspect]
  5. OFLOXACIN [Concomitant]
  6. AUGMENTIN '125' [Concomitant]

REACTIONS (3)
  - COMA [None]
  - DRUG INTERACTION [None]
  - SOMNOLENCE [None]
